FAERS Safety Report 11397114 (Version 6)
Quarter: 2015Q4

REPORT INFORMATION
  Report Type: Spontaneous
  Country: US (occurrence: US)
  Receive Date: 20150819
  Receipt Date: 20151020
  Transmission Date: 20160304
  Serious: Yes (Other)
  Sender: FDA-Public Use
  Company Number: US-PFIZER INC-2015271860

PATIENT
  Age: 71 Year
  Sex: Female

DRUGS (2)
  1. LYRICA [Suspect]
     Active Substance: PREGABALIN
     Indication: FIBROMYALGIA
     Dosage: 150 MG, 3X/DAY
     Route: 048
     Dates: start: 2012
  2. LYRICA [Suspect]
     Active Substance: PREGABALIN
     Indication: NEUROPATHY PERIPHERAL
     Dosage: 75 MG, 2X/DAY
     Route: 048

REACTIONS (9)
  - Peripheral swelling [Unknown]
  - Dysstasia [Unknown]
  - Dizziness [Unknown]
  - Confusional state [Unknown]
  - Skin injury [Unknown]
  - Fall [Unknown]
  - Ligament sprain [Unknown]
  - Amnesia [Unknown]
  - Joint injury [Unknown]

NARRATIVE: CASE EVENT DATE: 201503
